FAERS Safety Report 11537922 (Version 1)
Quarter: 2015Q3

REPORT INFORMATION
  Report Type: Spontaneous
  Country: US (occurrence: US)
  Receive Date: 20150922
  Receipt Date: 20150922
  Transmission Date: 20151125
  Serious: No
  Sender: FDA-Public Use
  Company Number: US-SA-2015SA017616

PATIENT
  Age: 33 Year
  Sex: Male

DRUGS (4)
  1. TUBERSOL [Suspect]
     Active Substance: TUBERCULIN PURIFIED PROTEIN DERIVATIVE
     Indication: TUBERCULIN TEST
     Route: 023
     Dates: start: 20150113, end: 20150113
  2. TUBERSOL [Suspect]
     Active Substance: TUBERCULIN PURIFIED PROTEIN DERIVATIVE
     Indication: TUBERCULIN TEST
     Route: 023
     Dates: start: 20150120, end: 20150120
  3. CITALOPRAM [Concomitant]
     Active Substance: CITALOPRAM HYDROBROMIDE
     Route: 065
  4. TUBERSOL [Suspect]
     Active Substance: TUBERCULIN PURIFIED PROTEIN DERIVATIVE
     Indication: TUBERCULIN TEST
     Route: 023
     Dates: start: 20150106, end: 20150106

REACTIONS (3)
  - Burning sensation [Recovered/Resolved]
  - Injection site erythema [Recovered/Resolved]
  - Contusion [Unknown]

NARRATIVE: CASE EVENT DATE: 20150106
